FAERS Safety Report 21507229 (Version 1)
Quarter: 2022Q4

REPORT INFORMATION
  Report Type: Spontaneous
  Country: JP (occurrence: None)
  Receive Date: 20221026
  Receipt Date: 20221026
  Transmission Date: 20230112
  Serious: Yes (Other)
  Sender: FDA-Public Use
  Company Number: JP-Orion Corporation ORION PHARMA-ENTC2022-0197

PATIENT
  Age: 63 Year
  Sex: Male

DRUGS (2)
  1. STALEVO [Suspect]
     Active Substance: CARBIDOPA\ENTACAPONE\LEVODOPA
     Indication: Parkinson^s disease
     Route: 048
     Dates: start: 2019
  2. ROTIGOTINE [Concomitant]
     Active Substance: ROTIGOTINE
     Route: 065

REACTIONS (2)
  - Parkinson^s disease [Unknown]
  - Product residue present [Unknown]
